FAERS Safety Report 14020541 (Version 2)
Quarter: 2017Q4

REPORT INFORMATION
  Report Type: Report from Study
  Country: FR (occurrence: FR)
  Receive Date: 20170928
  Receipt Date: 20171018
  Transmission Date: 20180321
  Serious: No
  Sender: FDA-Public Use
  Company Number: FR-VIIV HEALTHCARE LIMITED-FR2017GSK149307

PATIENT
  Age: 45 Year
  Sex: Male

DRUGS (3)
  1. KIVEXA [Concomitant]
     Active Substance: ABACAVIR SULFATE\LAMIVUDINE
     Indication: HIV INFECTION
  2. DOLUTEGRAVIR [Suspect]
     Active Substance: DOLUTEGRAVIR
     Dosage: 50 MG, BID
     Dates: start: 20161021
  3. DOLUTEGRAVIR [Suspect]
     Active Substance: DOLUTEGRAVIR
     Indication: HIV INFECTION
     Dosage: 50 MG, Z
     Dates: start: 20160812

REACTIONS (1)
  - Mineral supplementation [Unknown]
